FAERS Safety Report 19828260 (Version 22)
Quarter: 2022Q3

REPORT INFORMATION
  Report Type: Report from Study
  Country: CA (occurrence: CA)
  Receive Date: 20210914
  Receipt Date: 20220715
  Transmission Date: 20221027
  Serious: Yes (Disabling, Other)
  Sender: FDA-Public Use
  Company Number: CA-KOREA IPSEN PHARMA-2021-22062

PATIENT
  Age: 57 Year
  Sex: Male

DRUGS (15)
  1. LANREOTIDE ACETATE [Suspect]
     Active Substance: LANREOTIDE ACETATE
     Indication: Neuroendocrine tumour
     Dosage: 120 MG ONCE EVERY 4 WEEKS
     Route: 058
     Dates: start: 20170913
  2. LANREOTIDE ACETATE [Suspect]
     Active Substance: LANREOTIDE ACETATE
     Dosage: 120 MG EVERY 2 WEEKS
     Route: 058
     Dates: start: 2021, end: 2022
  3. LANREOTIDE ACETATE [Suspect]
     Active Substance: LANREOTIDE ACETATE
     Dosage: 120 MG ONCE EVERY 4 WEEKS
     Route: 058
     Dates: start: 2022
  4. HYDROMORPHONE [Concomitant]
     Active Substance: HYDROMORPHONE
     Dosage: 1 MG Q4H PRN
  5. HYDROMORPHONE [Concomitant]
     Active Substance: HYDROMORPHONE
  6. SYNTHROID [Concomitant]
     Active Substance: LEVOTHYROXINE SODIUM
     Dosage: 75 MCG, DIE
  7. PANTOPRAZOLE SODIUM [Concomitant]
     Active Substance: PANTOPRAZOLE SODIUM
  8. LYRICA [Concomitant]
     Active Substance: PREGABALIN
  9. CHOLECALCIFEROL [Concomitant]
     Active Substance: CHOLECALCIFEROL
     Dosage: SATURDAY
  10. AMITRIPTYLINE [Concomitant]
     Active Substance: AMITRIPTYLINE
     Dosage: 50 MG HS (BEFORE BEDTIME)
  11. CORTEF [Concomitant]
     Active Substance: HYDROCORTISONE
  12. PAROXETINE [Concomitant]
     Active Substance: PAROXETINE
  13. TESTOST [Concomitant]
     Dosage: 1 APPLICATION
  14. ATIVAN [Concomitant]
     Active Substance: LORAZEPAM
     Dosage: 1 MG S/L PO PRN
  15. LUTATHERA [Concomitant]
     Active Substance: LUTETIUM OXODOTREOTIDE LU-177
     Dates: start: 20220323

REACTIONS (17)
  - Dizziness [Not Recovered/Not Resolved]
  - Headache [Not Recovered/Not Resolved]
  - Nausea [Not Recovered/Not Resolved]
  - Hepatic lesion [Not Recovered/Not Resolved]
  - Rectal haemorrhage [Recovered/Resolved]
  - Diarrhoea haemorrhagic [Not Recovered/Not Resolved]
  - Injection site pain [Recovered/Resolved]
  - Injection site discomfort [Recovered/Resolved]
  - Diarrhoea [Recovered/Resolved]
  - Vomiting [Recovered/Resolved]
  - Arthralgia [Recovering/Resolving]
  - Diarrhoea [Not Recovered/Not Resolved]
  - Diarrhoea [Unknown]
  - Malaise [Unknown]
  - Herpes zoster [Not Recovered/Not Resolved]
  - Off label use [Unknown]
  - Off label use [Unknown]

NARRATIVE: CASE EVENT DATE: 20210101
